FAERS Safety Report 14071659 (Version 1)
Quarter: 2017Q4

REPORT INFORMATION
  Report Type: Spontaneous
  Country: US (occurrence: US)
  Receive Date: 20171011
  Receipt Date: 20171011
  Transmission Date: 20180321
  Serious: No
  Sender: FDA-Public Use
  Company Number: US-PFIZER INC-2017432460

PATIENT
  Age: 44 Year
  Sex: Male

DRUGS (1)
  1. VIAGRA [Suspect]
     Active Substance: SILDENAFIL CITRATE
     Dosage: 1-2 100 MG PILLS/TWO 100MG TABLETS, BY MOUTH 1 TIME A WEEK
     Route: 048

REACTIONS (5)
  - Intentional product misuse [Unknown]
  - Cyanopsia [Unknown]
  - Paranasal sinus discomfort [Unknown]
  - Nausea [Not Recovered/Not Resolved]
  - Head discomfort [Unknown]

NARRATIVE: CASE EVENT DATE: 20161211
